FAERS Safety Report 6886437-X (Version None)
Quarter: 2010Q3

REPORT INFORMATION
  Report Type: 
  Country: None (occurrence: None)
  Receive Date: 20100729
  Receipt Date: 20090622
  Transmission Date: 20110219
  Serious: No
  Sender: FDA-Public Use
  Company Number: US-PFIZER INC-2009204826

PATIENT
  Sex: Female
  Weight: 74.8 kg

DRUGS (2)
  1. CELEBREX [Suspect]
     Indication: MUSCULOSKELETAL PAIN
     Dosage: UNK
     Dates: start: 20090401
  2. CELEBREX [Suspect]
     Indication: ARTHRALGIA

REACTIONS (1)
  - HERPES ZOSTER [None]
